FAERS Safety Report 7178158-3 (Version None)
Quarter: 2010Q4

REPORT INFORMATION
  Report Type: 
  Country: None (occurrence: None)
  Receive Date: 20101220
  Receipt Date: 20101208
  Transmission Date: 20110411
  Serious: Yes (Disabling)
  Sender: FDA-Public Use
  Company Number: B0689854A

PATIENT
  Sex: Female
  Weight: 90.5 kg

DRUGS (7)
  1. ROSIGLITAZONE [Suspect]
     Route: 048
     Dates: start: 20030416, end: 20050831
  2. METFORMIN HCL [Concomitant]
     Dosage: 3000MG PER DAY
     Route: 048
     Dates: start: 20061124, end: 20101105
  3. METFORMIN HCL [Concomitant]
     Dosage: 2000MG TWICE PER DAY
     Route: 048
     Dates: start: 20010911, end: 20060227
  4. GLICLAZIDE [Concomitant]
     Dosage: 40MG PER DAY
     Dates: start: 20061104, end: 20061208
  5. GLICLAZIDE [Concomitant]
     Dosage: 60MG PER DAY
     Route: 048
     Dates: start: 20061209, end: 20101109
  6. GLICLAZIDE [Concomitant]
     Dosage: 100MG TWICE PER DAY
     Route: 048
     Dates: start: 20101110
  7. METFORMIN HCL [Concomitant]
     Dosage: 2500MG PER DAY
     Route: 048

REACTIONS (2)
  - FALL [None]
  - RADIUS FRACTURE [None]
